FAERS Safety Report 10413137 (Version 2)
Quarter: 2014Q3

REPORT INFORMATION
  Report Type: Report from Study
  Country: BR (occurrence: BR)
  Receive Date: 20140827
  Receipt Date: 20140827
  Transmission Date: 20150326
  Serious: Yes (Hospitalization)
  Sender: FDA-Public Use
  Company Number: BR-US-EMD SERONO, INC.-7314170

PATIENT
  Age: 45 Year
  Sex: Female

DRUGS (1)
  1. REBIF [Suspect]
     Active Substance: INTERFERON BETA-1A
     Indication: RELAPSING-REMITTING MULTIPLE SCLEROSIS
     Dates: start: 201403, end: 20140808

REACTIONS (6)
  - Hypotension [Unknown]
  - Pyrexia [Unknown]
  - Asthenia [Unknown]
  - Burning sensation [Unknown]
  - Intervertebral disc disorder [Unknown]
  - Blood urine present [Unknown]

NARRATIVE: CASE EVENT DATE: 20140813
